FAERS Safety Report 5514109-2 (Version None)
Quarter: 2007Q4

REPORT INFORMATION
  Report Type: 
  Country: None (occurrence: None)
  Receive Date: 20071113
  Receipt Date: 20071109
  Transmission Date: 20080405
  Serious: Yes (Hospitalization)
  Sender: FDA-Public Use
  Company Number: DE-BRISTOL-MYERS SQUIBB COMPANY-13977624

PATIENT
  Age: 61 Year
  Sex: Female
  Weight: 60 kg

DRUGS (4)
  1. PACLITAXEL [Suspect]
     Indication: BREAST CANCER
     Route: 042
     Dates: start: 20070716, end: 20070815
  2. DEXAMETHASONE [Concomitant]
     Route: 048
     Dates: start: 20070731, end: 20070801
  3. ZOFRAN [Concomitant]
     Route: 048
     Dates: start: 20070731, end: 20070801
  4. L-THYROXINE [Concomitant]
     Route: 048

REACTIONS (2)
  - HYPERSENSITIVITY [None]
  - HYPERTENSIVE CRISIS [None]
